FAERS Safety Report 9915282 (Version 4)
Quarter: 2014Q2

REPORT INFORMATION
  Report Type: Spontaneous
  Country: IL (occurrence: IL)
  Receive Date: 20140221
  Receipt Date: 20140425
  Transmission Date: 20141212
  Serious: Yes (Hospitalization, Other)
  Sender: FDA-Public Use
  Company Number: IL-009507513-1402ISR008824

PATIENT
  Age: 61 Year
  Sex: Male

DRUGS (1)
  1. JANUET [Suspect]
     Indication: DIABETES MELLITUS
     Dosage: UNK
     Route: 048
     Dates: start: 201312, end: 201401

REACTIONS (2)
  - Cancer surgery [Unknown]
  - Pancreatic carcinoma [Unknown]
